FAERS Safety Report 14056655 (Version 2)
Quarter: 2017Q4

REPORT INFORMATION
  Report Type: Spontaneous
  Country: CZ (occurrence: CZ)
  Receive Date: 20171006
  Receipt Date: 20171124
  Transmission Date: 20180321
  Serious: Yes (Other)
  Sender: FDA-Public Use
  Company Number: CZ-PFIZER INC-2017266055

PATIENT
  Age: 27 Year
  Sex: Female

DRUGS (1)
  1. DALACIN [Suspect]
     Active Substance: CLINDAMYCIN
     Indication: BACTERIAL VAGINOSIS
     Dosage: 40 G, 1X/DAY IN THE EVENING
     Dates: start: 20170602, end: 20170604

REACTIONS (6)
  - Rash maculo-papular [Recovered/Resolved with Sequelae]
  - Product label confusion [Unknown]
  - Product quality issue [Unknown]
  - Erythema [Recovered/Resolved with Sequelae]
  - Poor quality drug administered [Unknown]
  - Hypersensitivity [Unknown]

NARRATIVE: CASE EVENT DATE: 201706
